FAERS Safety Report 8111434-6 (Version None)
Quarter: 2012Q1

REPORT INFORMATION
  Report Type: 
  Country: None (occurrence: None)
  Receive Date: 20120203
  Receipt Date: 20111213
  Transmission Date: 20120608
  Serious: No
  Sender: FDA-Public Use
  Company Number: US-GLAXOSMITHKLINE-A0957987A

PATIENT
  Age: 55 Year
  Sex: Female

DRUGS (4)
  1. REQUIP [Concomitant]
  2. PAMELOR [Concomitant]
  3. LAMICTAL [Suspect]
     Indication: DEPRESSION
     Dosage: 300MG IN THE MORNING
     Route: 048
     Dates: start: 20110831
  4. KLONOPIN [Concomitant]

REACTIONS (1)
  - RASH [None]
